FAERS Safety Report 6662768-3 (Version None)
Quarter: 2010Q2

REPORT INFORMATION
  Report Type: 
  Country: None (occurrence: None)
  Receive Date: 20100401
  Receipt Date: 20100325
  Transmission Date: 20101027
  Serious: No
  Sender: FDA-Public Use
  Company Number: US-BIOGENIDEC-2010BI010524

PATIENT
  Age: 51 Year
  Sex: Male

DRUGS (2)
  1. TYSABRI [Suspect]
     Indication: MULTIPLE SCLEROSIS
     Route: 042
     Dates: start: 20050224, end: 20050201
  2. TYSABRI [Suspect]
     Route: 042
     Dates: start: 20080325

REACTIONS (3)
  - ASTHENIA [None]
  - DEPRESSION [None]
  - NIGHTMARE [None]
